FAERS Safety Report 4652170-8 (Version None)
Quarter: 2005Q2

REPORT INFORMATION
  Report Type: 
  Country: None (occurrence: None)
  Receive Date: 20050504
  Receipt Date: 20050429
  Transmission Date: 20051028
  Serious: Yes (Other)
  Sender: FDA-Public Use
  Company Number: PHBS2005BE06242

PATIENT
  Age: 43 Year
  Sex: Female

DRUGS (2)
  1. EFFEXOR [Concomitant]
  2. ZOMETA [Suspect]
     Indication: METASTASES TO BONE

REACTIONS (5)
  - ASEPTIC NECROSIS BONE [None]
  - DISEASE PROGRESSION [None]
  - IMPAIRED HEALING [None]
  - PAIN IN JAW [None]
  - TOOTH EXTRACTION [None]
